FAERS Safety Report 9349201 (Version 2)
Quarter: 2013Q3

REPORT INFORMATION
  Report Type: Spontaneous
  Country: DE (occurrence: DE)
  Receive Date: 20130614
  Receipt Date: 20130801
  Transmission Date: 20140515
  Serious: Yes (Hospitalization)
  Sender: FDA-Public Use
  Company Number: DE-GLAXOSMITHKLINE-D0080057A

PATIENT
  Age: 43 Year
  Sex: Female

DRUGS (12)
  1. BENLYSTA [Suspect]
     Indication: SYSTEMIC LUPUS ERYTHEMATOSUS
     Dosage: 640MG SINGLE DOSE
     Route: 042
     Dates: start: 20130206, end: 20130206
  2. TARGIN [Concomitant]
     Dosage: 30MG TWICE PER DAY
     Route: 048
  3. MYCOPHENOLATE MOFETIL [Concomitant]
     Dosage: 500MG THREE TIMES PER DAY
     Route: 048
  4. CARVEDILOL [Concomitant]
     Dosage: 25MG TWICE PER DAY
     Route: 048
  5. AMLODIPIN [Concomitant]
     Dosage: 5MG TWICE PER DAY
     Route: 048
  6. SODIUM BICARBONATE [Concomitant]
     Dosage: 1G THREE TIMES PER DAY
     Route: 048
  7. OMEPRAZOL [Concomitant]
     Dosage: 20MG IN THE MORNING
     Route: 048
  8. FERROSANOL [Concomitant]
     Route: 048
  9. FALITHROM [Concomitant]
     Route: 048
  10. PREDNISOLON [Concomitant]
     Dosage: 10MG PER DAY
     Route: 065
  11. CALCILAC [Concomitant]
     Route: 048
  12. ZOLPIDEM [Concomitant]
     Dosage: 10MG AT NIGHT
     Route: 048

REACTIONS (1)
  - Hypertensive crisis [Recovering/Resolving]
